FAERS Safety Report 6126070-0 (Version None)
Quarter: 2009Q1

REPORT INFORMATION
  Report Type: 
  Country: None (occurrence: None)
  Receive Date: 20090320
  Receipt Date: 20090310
  Transmission Date: 20090719
  Serious: Yes (Hospitalization)
  Sender: FDA-Public Use
  Company Number: US-BAXTER-2009BH004120

PATIENT
  Age: 48 Year
  Sex: Female
  Weight: 53 kg

DRUGS (2)
  1. ENDOXAN BAXTER [Suspect]
     Indication: ACQUIRED HAEMOPHILIA
     Route: 065
  2. ENDOXAN BAXTER [Suspect]
     Indication: OFF LABEL USE
     Route: 065

REACTIONS (1)
  - RENAL FAILURE ACUTE [None]
